FAERS Safety Report 12673755 (Version 1)
Quarter: 2016Q3

REPORT INFORMATION
  Report Type: Spontaneous
  Country: DE (occurrence: DE)
  Receive Date: 20160822
  Receipt Date: 20160822
  Transmission Date: 20161109
  Serious: Yes (Other)
  Sender: FDA-Public Use
  Company Number: DE-JNJFOC-20160800522

PATIENT
  Age: 47 Year
  Sex: Male

DRUGS (4)
  1. REMICADE [Suspect]
     Active Substance: INFLIXIMAB
     Indication: CROHN^S DISEASE
     Route: 042
     Dates: start: 201409
  2. REMICADE [Suspect]
     Active Substance: INFLIXIMAB
     Indication: CROHN^S DISEASE
     Route: 042
     Dates: start: 20140101
  3. REMICADE [Suspect]
     Active Substance: INFLIXIMAB
     Indication: CROHN^S DISEASE
     Route: 042
     Dates: start: 20160705
  4. REMICADE [Suspect]
     Active Substance: INFLIXIMAB
     Indication: CROHN^S DISEASE
     Route: 042
     Dates: start: 20160628

REACTIONS (7)
  - Chest pain [Recovered/Resolved]
  - Pruritus [Recovered/Resolved]
  - Feeling hot [Recovered/Resolved]
  - Hyperhidrosis [Recovered/Resolved]
  - Dyspnoea [Recovered/Resolved]
  - Infusion related reaction [Recovered/Resolved]
  - Palpitations [Recovered/Resolved]

NARRATIVE: CASE EVENT DATE: 20160628
